FAERS Safety Report 8546947-6 (Version None)
Quarter: 2012Q3

REPORT INFORMATION
  Report Type: 
  Country: None (occurrence: None)
  Receive Date: 20120727
  Receipt Date: 20120220
  Transmission Date: 20120928
  Serious: No
  Sender: FDA-Public Use
  Company Number: US-ASTRAZENECA-2012SE04495

PATIENT
  Sex: Female

DRUGS (15)
  1. SEROQUEL [Suspect]
     Dosage: HALF TABLET, DAILY
     Route: 048
  2. CELEXA [Concomitant]
     Indication: DEPRESSION
  3. SEROQUEL [Suspect]
     Route: 048
  4. SEROQUEL [Suspect]
     Indication: RESTLESSNESS
     Route: 048
  5. SEROQUEL [Suspect]
     Route: 048
  6. CELEXA [Concomitant]
     Indication: SLEEP DISORDER
  7. SEROQUEL [Suspect]
     Indication: SLEEP DISORDER
     Route: 048
  8. SEROQUEL [Suspect]
     Route: 048
  9. SEROQUEL [Suspect]
     Route: 048
  10. SEROQUEL [Suspect]
     Route: 048
  11. SEROQUEL [Suspect]
     Route: 048
  12. CELEXA [Concomitant]
     Indication: RESTLESSNESS
  13. SEROQUEL [Suspect]
     Indication: DEPRESSION
     Route: 048
  14. SEROQUEL [Suspect]
     Dosage: HALF TABLET, DAILY
     Route: 048
  15. SEROQUEL [Suspect]
     Dosage: HALF TABLET, DAILY
     Route: 048

REACTIONS (8)
  - INSOMNIA [None]
  - ANXIETY [None]
  - FATIGUE [None]
  - WRONG TECHNIQUE IN DRUG USAGE PROCESS [None]
  - INAPPROPRIATE SCHEDULE OF DRUG ADMINISTRATION [None]
  - OFF LABEL USE [None]
  - DRUG INEFFECTIVE FOR UNAPPROVED INDICATION [None]
  - FEELING ABNORMAL [None]
